FAERS Safety Report 14474712 (Version 1)
Quarter: 2018Q1

REPORT INFORMATION
  Report Type: Spontaneous
  Country: US (occurrence: US)
  Receive Date: 20180131
  Receipt Date: 20180131
  Transmission Date: 20180509
  Serious: Yes (Other)
  Sender: FDA-Public Use
  Company Number: None

PATIENT
  Age: 59 Year
  Sex: Female
  Weight: 63.5 kg

DRUGS (12)
  1. ALPRAZOLOAM [Concomitant]
  2. QUETIAPINE. [Concomitant]
     Active Substance: QUETIAPINE
  3. BROPION [Concomitant]
  4. ZOLPIDEM [Concomitant]
     Active Substance: ZOLPIDEM\ZOLPIDEM TARTRATE
  5. WOMEN^S MINOXIDIL [Concomitant]
  6. FIBER THERAPY [Concomitant]
     Active Substance: METHYLCELLULOSE (4000 MPA.S)
  7. AMILOPEDINE [Concomitant]
  8. BIOTINE [Concomitant]
     Active Substance: LACTOPEROXIDASE BOVINE\LYSOZYME HYDROCHLORIDE
  9. LIDOCAINE PATCH %5, 5% MG [Suspect]
     Active Substance: LIDOCAINE
     Indication: ARTHROPATHY
     Dosage: QUANTITY:30 PATCH(ES); ONCE  A DAY, APPLIED TO A SURFACE, USUALLY THE SKIN?
     Route: 061
     Dates: start: 20180120
  10. KETOCONAZOLE. [Concomitant]
     Active Substance: KETOCONAZOLE
  11. LOSARTAN. [Concomitant]
     Active Substance: LOSARTAN
  12. GABAPEDINE [Concomitant]

REACTIONS (3)
  - Product substitution issue [None]
  - Therapeutic product ineffective [None]
  - Product adhesion issue [None]

NARRATIVE: CASE EVENT DATE: 20180120
